FAERS Safety Report 11867606 (Version 2)
Quarter: 2017Q1

REPORT INFORMATION
  Report Type: Report from Study
  Country: None (occurrence: US)
  Receive Date: 20151224
  Receipt Date: 20170214
  Transmission Date: 20170428
  Serious: Yes (Hospitalization)
  Sender: FDA-Public Use
  Company Number: US-ABBVIE-15K-163-1522947-00

PATIENT
  Age: 58 Year
  Sex: Female
  Weight: 59.02 kg

DRUGS (2)
  1. HUMIRA [Suspect]
     Active Substance: ADALIMUMAB
     Indication: RHEUMATOID ARTHRITIS
     Route: 058
     Dates: start: 2013, end: 201505
  2. HUMIRA [Suspect]
     Active Substance: ADALIMUMAB
     Route: 058
     Dates: start: 20151014

REACTIONS (10)
  - Dry mouth [Recovered/Resolved]
  - Arthritis [Unknown]
  - Skin disorder [Not Recovered/Not Resolved]
  - Mobility decreased [Unknown]
  - Fatigue [Not Recovered/Not Resolved]
  - Discomfort [Not Recovered/Not Resolved]
  - Chondropathy [Not Recovered/Not Resolved]
  - Weight increased [Not Recovered/Not Resolved]
  - Joint swelling [Not Recovered/Not Resolved]
  - Arthralgia [Recovered/Resolved]

NARRATIVE: CASE EVENT DATE: 2015
